FAERS Safety Report 21107021 (Version 1)
Quarter: 2022Q3

REPORT INFORMATION
  Report Type: Spontaneous
  Country: US (occurrence: US)
  Receive Date: 20220720
  Receipt Date: 20220720
  Transmission Date: 20221027
  Serious: No
  Sender: FDA-Public Use
  Company Number: US-JAZZ-2022-US-011843

PATIENT
  Sex: Female
  Weight: 102.95 kg

DRUGS (1)
  1. EPIDIOLEX [Suspect]
     Active Substance: CANNABIDIOL
     Indication: Focal dyscognitive seizures
     Dosage: 2 MILLILITER
     Route: 048
     Dates: start: 202112, end: 202204

REACTIONS (1)
  - Drug ineffective [Unknown]
